FAERS Safety Report 18552792 (Version 2)
Quarter: 2020Q4

REPORT INFORMATION
  Report Type: Report from Study
  Country: US (occurrence: US)
  Receive Date: 20201127
  Receipt Date: 20201205
  Transmission Date: 20210114
  Serious: Yes (Other)
  Sender: FDA-Public Use
  Company Number: US-AUROBINDO-AUR-APL-2020-057435

PATIENT
  Age: 31 Year
  Sex: Female

DRUGS (3)
  1. ZONISAMIDE SUN PHARMACEUTICAL [Suspect]
     Active Substance: ZONISAMIDE
     Indication: EPILEPSY
     Dosage: 600 MILLIGRAM
     Route: 065
     Dates: start: 20200324, end: 20200608
  2. LEVETIRACETAM. [Suspect]
     Active Substance: LEVETIRACETAM
     Indication: EPILEPSY
     Dosage: 3000 MILLIGRAM
     Route: 065
     Dates: start: 20200324, end: 20200608
  3. VIMPAT [Suspect]
     Active Substance: LACOSAMIDE
     Indication: EPILEPSY
     Dosage: 400 MILLIGRAM
     Route: 065
     Dates: start: 20200324, end: 20200608

REACTIONS (2)
  - Exposure during pregnancy [Unknown]
  - Abortion spontaneous [Unknown]

NARRATIVE: CASE EVENT DATE: 20200608
